FAERS Safety Report 7149555-7 (Version None)
Quarter: 2010Q4

REPORT INFORMATION
  Report Type: 
  Country: None (occurrence: None)
  Receive Date: 20101209
  Receipt Date: 20101202
  Transmission Date: 20110411
  Serious: Yes (Hospitalization, Other)
  Sender: FDA-Public Use
  Company Number: US-AMGEN-USASP2010007221

PATIENT

DRUGS (2)
  1. ENBREL [Suspect]
     Indication: PSORIASIS
     Dosage: 50 MG, QWK
     Dates: start: 20070701
  2. ALLOPURINOL [Concomitant]

REACTIONS (5)
  - ADVERSE DRUG REACTION [None]
  - CHEMOTHERAPY [None]
  - FULL BLOOD COUNT DECREASED [None]
  - INJECTION SITE PAIN [None]
  - PSORIASIS [None]
